FAERS Safety Report 5109951-6 (Version None)
Quarter: 2006Q3

REPORT INFORMATION
  Report Type: 
  Country: None (occurrence: None)
  Receive Date: 20060919
  Receipt Date: 20060919
  Transmission Date: 20061208
  Serious: Yes (Life-Threatening, Disabling)
  Sender: FDA-Public Use
  Company Number: None

PATIENT
  Sex: Female

DRUGS (1)
  1. OMNISCAN [Suspect]
     Indication: NUCLEAR MAGNETIC RESONANCE IMAGING ABNORMAL
     Dosage: 40 CC IV
     Route: 042
     Dates: start: 20050509

REACTIONS (3)
  - MUSCLE CONTRACTURE [None]
  - SKIN DISORDER [None]
  - SKIN LESION [None]
